FAERS Safety Report 21830957 (Version 4)
Quarter: 2024Q1

REPORT INFORMATION
  Report Type: Spontaneous
  Country: US (occurrence: US)
  Receive Date: 20230106
  Receipt Date: 20240125
  Transmission Date: 20240410
  Serious: No
  Sender: FDA-Public Use
  Company Number: US-PFIZER INC-202300003659

PATIENT
  Age: 97 Year
  Sex: Female
  Weight: 52.159 kg

DRUGS (3)
  1. PAXLOVID [Suspect]
     Active Substance: NIRMATRELVIR\RITONAVIR
     Indication: COVID-19 treatment
     Dosage: [NIRMATRELVIR 150 MG]/[RITONAVIR 100 MG]; 2X/DAY
  2. LATANOPROST [Suspect]
     Active Substance: LATANOPROST
     Indication: Glaucoma
     Dosage: UNK
  3. CLONAZEPAM [Concomitant]
     Active Substance: CLONAZEPAM
     Dosage: 1 MG IN NIGHT

REACTIONS (6)
  - Chalazion [Unknown]
  - Eye pruritus [Unknown]
  - Erythema of eyelid [Unknown]
  - Diplopia [Unknown]
  - Blister [Unknown]
  - Memory impairment [Unknown]

NARRATIVE: CASE EVENT DATE: 20221001
